FAERS Safety Report 8430910-X (Version None)
Quarter: 2012Q2

REPORT INFORMATION
  Report Type: 
  Country: None (occurrence: None)
  Receive Date: 20120612
  Receipt Date: 20120606
  Transmission Date: 20120825
  Serious: Yes (Other)
  Sender: FDA-Public Use
  Company Number: JP-PFIZER INC-2012110503

PATIENT
  Age: 63 Year
  Sex: Male

DRUGS (1)
  1. ZYVOX [Suspect]
     Dosage: UNK
     Route: 042

REACTIONS (3)
  - CONVULSION [None]
  - TREMOR [None]
  - HYPONATRAEMIA [None]
